FAERS Safety Report 9501264 (Version 1)
Quarter: 2013Q1

REPORT INFORMATION
  Report Type: Spontaneous
  Country: US (occurrence: None)
  Receive Date: 20130107
  Receipt Date: 20130107
  Transmission Date: 20140127
  Serious: No
  Sender: FDA-Public Use
  Company Number: PHEH2012US021452

PATIENT
  Age: 65 Year
  Sex: Female

DRUGS (1)
  1. GILENYA [Suspect]
     Indication: MULTIPLE SCLEROSIS
     Route: 048
     Dates: start: 20121022, end: 20121030

REACTIONS (6)
  - Influenza like illness [None]
  - Feeling abnormal [None]
  - Nervousness [None]
  - Nausea [None]
  - Fatigue [None]
  - Pain [None]
